FAERS Safety Report 8062370-5 (Version None)
Quarter: 2012Q1

REPORT INFORMATION
  Report Type: 
  Country: None (occurrence: None)
  Receive Date: 20120123
  Receipt Date: 20120110
  Transmission Date: 20120608
  Serious: Yes (Hospitalization)
  Sender: FDA-Public Use
  Company Number: JP-ELI_LILLY_AND_COMPANY-JP201104006934

PATIENT
  Age: 81 Year
  Sex: Female

DRUGS (2)
  1. FORTEO [Suspect]
     Dosage: UNK
     Route: 058
  2. FORTEO [Suspect]
     Dosage: UNK
     Route: 058
     Dates: start: 20110920

REACTIONS (11)
  - GASTRIC ULCER [None]
  - CHOLECYSTITIS [None]
  - MALAISE [None]
  - FRACTURE [None]
  - CONSTIPATION [None]
  - SALIVARY HYPERSECRETION [None]
  - DECREASED APPETITE [None]
  - ABDOMINAL DISTENSION [None]
  - FEELING ABNORMAL [None]
  - ABDOMINAL DISCOMFORT [None]
  - NAUSEA [None]
